FAERS Safety Report 18594399 (Version 1)
Quarter: 2020Q4

REPORT INFORMATION
  Report Type: Spontaneous
  Country: US (occurrence: US)
  Receive Date: 20201209
  Receipt Date: 20201209
  Transmission Date: 20210114
  Serious: Yes (Other)
  Sender: FDA-Public Use
  Company Number: US-PFIZER INC-2020483996

PATIENT
  Age: 71 Year
  Sex: Female
  Weight: 76.2 kg

DRUGS (1)
  1. XELJANZ [Suspect]
     Active Substance: TOFACITINIB CITRATE
     Indication: RHEUMATOID ARTHRITIS
     Dosage: 5 MG, 2X/DAY
     Route: 048
     Dates: end: 2020

REACTIONS (8)
  - Eye injury [Unknown]
  - Dyspnoea [Unknown]
  - Memory impairment [Unknown]
  - Loss of control of legs [Unknown]
  - Seizure [Recovered/Resolved]
  - Mental disorder [Unknown]
  - Eye disorder [Unknown]
  - Contusion [Unknown]
